FAERS Safety Report 9330111 (Version 2)
Quarter: 2013Q2

REPORT INFORMATION
  Report Type: Spontaneous
  Country: JP (occurrence: JP)
  Receive Date: 20130604
  Receipt Date: 20130618
  Transmission Date: 20140414
  Serious: Yes (Hospitalization, Other)
  Sender: FDA-Public Use
  Company Number: PHHY2013JP055276

PATIENT
  Age: 76 Year
  Sex: Male

DRUGS (3)
  1. CLOPIDOGREL [Suspect]
     Indication: THROMBOSIS PROPHYLAXIS
  2. TICLOPIDINE [Suspect]
     Indication: THROMBOSIS PROPHYLAXIS
     Dosage: 200 MG, PER DAY
  3. ACETYLSALICYLIC ACID [Suspect]
     Indication: THROMBOSIS PROPHYLAXIS
     Dosage: 200 MG, PER DAY

REACTIONS (8)
  - Cholecystitis acute [Recovered/Resolved]
  - Abdominal pain upper [Recovered/Resolved]
  - Abdominal tenderness [Recovered/Resolved]
  - Gallbladder disorder [Recovered/Resolved]
  - Cholelithiasis [Recovered/Resolved]
  - Connective tissue inflammation [Recovered/Resolved]
  - Abdominal adhesions [Recovered/Resolved]
  - Procedural haemorrhage [Recovered/Resolved]
